FAERS Safety Report 18998633 (Version 1)
Quarter: 2021Q1

REPORT INFORMATION
  Report Type: Spontaneous
  Country: DE (occurrence: DE)
  Receive Date: 20210312
  Receipt Date: 20210312
  Transmission Date: 20210420
  Serious: No
  Sender: FDA-Public Use
  Company Number: DE-ALKEM LABORATORIES LIMITED-DE-ALKEM-2020-09589

PATIENT
  Age: 84 Year
  Sex: Male

DRUGS (2)
  1. SOLIFENACIN [Suspect]
     Active Substance: SOLIFENACIN
     Indication: URINARY RETENTION
     Dosage: UNK
     Route: 065
     Dates: start: 202012
  2. DUODART [Suspect]
     Active Substance: DUTASTERIDE\TAMSULOSIN
     Indication: BENIGN PROSTATIC HYPERPLASIA
     Dosage: 1 DF, QD (EVERY 1 DAY)
     Route: 065
     Dates: start: 1999

REACTIONS (2)
  - Gynaecomastia [Unknown]
  - Hypohidrosis [Not Recovered/Not Resolved]
